FAERS Safety Report 24997798 (Version 6)
Quarter: 2025Q3

REPORT INFORMATION
  Report Type: Spontaneous
  Country: US (occurrence: US)
  Receive Date: 20250222
  Receipt Date: 20250714
  Transmission Date: 20251020
  Serious: No
  Sender: SANOFI AVENTIS
  Company Number: US-SA-2025SA040195

PATIENT
  Age: 9 Year
  Sex: Male
  Weight: 26.757 kg

DRUGS (10)
  1. FABRAZYME [Suspect]
     Active Substance: AGALSIDASE BETA
     Indication: Fabry^s disease
     Dosage: 25 MG, QOW
     Route: 042
     Dates: start: 202406
  2. FABRAZYME [Suspect]
     Active Substance: AGALSIDASE BETA
     Dosage: 25 MG, QOW
     Route: 042
     Dates: start: 2025
  3. FABRAZYME [Suspect]
     Active Substance: AGALSIDASE BETA
     Dosage: 30 MG, QOW
     Route: 042
  4. ONDANSETRON [Concomitant]
     Active Substance: ONDANSETRON
  5. STERILE WATER [Concomitant]
     Active Substance: WATER
  6. EPINEPHRINE [Concomitant]
     Active Substance: EPINEPHRINE
  7. LIDOCAINE\PRILOCAINE [Concomitant]
     Active Substance: LIDOCAINE\PRILOCAINE
  8. SODIUM CHLORIDE [Concomitant]
     Active Substance: SODIUM CHLORIDE
  9. METHYLPREDNISOLONE SODIUM SUCCINATE [Concomitant]
     Active Substance: METHYLPREDNISOLONE SODIUM SUCCINATE
  10. SODIUM CHLORIDE [Concomitant]
     Active Substance: SODIUM CHLORIDE
     Route: 065

REACTIONS (3)
  - Weight fluctuation [Not Recovered/Not Resolved]
  - Gastroenteritis viral [Unknown]
  - Malaise [Unknown]

NARRATIVE: CASE EVENT DATE: 20250201
